FAERS Safety Report 5063463-7 (Version None)
Quarter: 2006Q3

REPORT INFORMATION
  Report Type: 
  Country: None (occurrence: None)
  Receive Date: 20060727
  Receipt Date: 20050421
  Transmission Date: 20061208
  Serious: Yes (Death, Life-Threatening)
  Sender: FDA-Public Use
  Company Number: BE-GLAXOSMITHKLINE-B0378664A

PATIENT
  Age: 72 Year
  Sex: Male
  Weight: 65 kg

DRUGS (19)
  1. GR270773 [Suspect]
     Indication: SEPSIS
     Route: 042
     Dates: start: 20050419, end: 20050422
  2. VENTOLIN [Suspect]
     Indication: BRONCHOSPASM
     Dates: start: 20050419, end: 20050420
  3. DUOVENT [Suspect]
     Dates: start: 20050413, end: 20050423
  4. DOBUTREX [Suspect]
     Indication: HYPOTENSION
     Dates: start: 20050419, end: 20050423
  5. LEVOPHED [Concomitant]
     Indication: HYPOTENSION
     Dates: start: 20050419, end: 20050423
  6. AUGMENTIN '125' [Concomitant]
     Indication: PNEUMONIA
     Dosage: 2G THREE TIMES PER DAY
     Route: 042
     Dates: start: 20050415, end: 20050419
  7. CIPROFLOXACIN [Concomitant]
     Indication: PNEUMONIA
     Dosage: 400MG TWICE PER DAY
     Route: 042
     Dates: start: 20050419, end: 20050423
  8. AMIKACIN [Concomitant]
     Indication: PNEUMONIA
     Dosage: 1G PER DAY
     Route: 042
     Dates: start: 20050419, end: 20050423
  9. MIDAZOLAM HYDROCHLORIDE [Concomitant]
     Indication: SEDATION
     Dates: start: 20050419, end: 20050423
  10. FENTANYL [Concomitant]
     Indication: SEDATION
     Dates: start: 20050419, end: 20050423
  11. ZANTAC [Concomitant]
     Indication: PROPHYLAXIS AGAINST GASTROINTESTINAL ULCER
     Dates: start: 20050419, end: 20050423
  12. LYSOMUCIL [Concomitant]
     Dates: start: 20050419, end: 20050423
  13. SOLU-MEDROL [Concomitant]
     Dates: start: 20050419, end: 20050423
  14. ALBUMIN (HUMAN) [Concomitant]
     Dates: start: 20050420, end: 20050421
  15. LASIX [Concomitant]
     Indication: URINE OUTPUT DECREASED
     Dates: start: 20050420, end: 20050421
  16. BICARBONATE [Concomitant]
     Indication: ACIDOSIS
     Dates: start: 20050419, end: 20050419
  17. HUMULIN [Concomitant]
     Dates: start: 20050419, end: 20050423
  18. CORDARONE [Concomitant]
     Indication: ATRIAL FLUTTER
     Dates: start: 20050420, end: 20050423
  19. NIMBEX [Concomitant]
     Dates: start: 20050421, end: 20050421

REACTIONS (6)
  - ATRIAL FIBRILLATION [None]
  - BRADYCARDIA [None]
  - CARDIAC ARREST [None]
  - CARDIOGENIC SHOCK [None]
  - HAEMODYNAMIC INSTABILITY [None]
  - HYPOTENSION [None]
